FAERS Safety Report 10707428 (Version 1)
Quarter: 2015Q1

REPORT INFORMATION
  Report Type: Spontaneous
  Country: US (occurrence: None)
  Receive Date: 20150112
  Receipt Date: 20150112
  Transmission Date: 20150721
  Serious: Yes (Other)
  Sender: FDA-Public Use
  Company Number: None

PATIENT
  Age: 2 Year
  Sex: Male
  Weight: 15.88 kg

DRUGS (1)
  1. TAMIFLU [Suspect]
     Active Substance: OSELTAMIVIR PHOSPHATE
     Indication: INFLUENZA
     Dosage: 1 1/2 TEASPOONS TWICE DAILY TAKEN BY MOUTH.
     Route: 048

REACTIONS (2)
  - Middle insomnia [None]
  - Hallucination [None]

NARRATIVE: CASE EVENT DATE: 20150109
